FAERS Safety Report 10722747 (Version 1)
Quarter: 2015Q1

REPORT INFORMATION
  Report Type: Spontaneous
  Country: US (occurrence: US)
  Receive Date: 20150120
  Receipt Date: 20150120
  Transmission Date: 20150721
  Serious: Yes (Hospitalization, Other)
  Sender: FDA-Public Use
  Company Number: US-AMGEN-USASP2015003082

PATIENT
  Age: 68 Year
  Sex: Female

DRUGS (2)
  1. ENBREL [Suspect]
     Active Substance: ETANERCEPT
     Indication: RHEUMATOID ARTHRITIS
     Dosage: 50 MG, QWK
     Route: 065
     Dates: start: 20140922
  2. ELIQUIS [Concomitant]
     Active Substance: APIXABAN
     Dosage: UNK

REACTIONS (12)
  - Scab [Recovered/Resolved]
  - Arthralgia [Not Recovered/Not Resolved]
  - Large intestine polyp [Recovered/Resolved]
  - Vascular rupture [Recovered/Resolved]
  - Injection site erythema [Not Recovered/Not Resolved]
  - Feeling abnormal [Recovered/Resolved]
  - Injection site urticaria [Unknown]
  - Colitis [Recovered/Resolved]
  - Hyperhidrosis [Recovered/Resolved]
  - Basal cell carcinoma [Recovered/Resolved]
  - Injection site pain [Not Recovered/Not Resolved]
  - Lumbar vertebral fracture [Not Recovered/Not Resolved]

NARRATIVE: CASE EVENT DATE: 2014
